FAERS Safety Report 20980544 (Version 2)
Quarter: 2023Q2

REPORT INFORMATION
  Report Type: Report from Study
  Country: IT (occurrence: IT)
  Receive Date: 20220620
  Receipt Date: 20230616
  Transmission Date: 20230722
  Serious: Yes (Other)
  Sender: FDA-Public Use
  Company Number: IT-SUN PHARMACEUTICAL INDUSTRIES LTD-2022R1-341122

PATIENT
  Age: 48 Year
  Sex: Male

DRUGS (1)
  1. QUINIDINE [Suspect]
     Active Substance: QUINIDINE
     Indication: Mitral valve stenosis
     Dosage: UNK
     Route: 065

REACTIONS (2)
  - Ventricular extrasystoles [Unknown]
  - Sinus bradycardia [Unknown]
